FAERS Safety Report 19162956 (Version 1)
Quarter: 2021Q2

REPORT INFORMATION
  Report Type: Spontaneous
  Country: US (occurrence: US)
  Receive Date: 20210420
  Receipt Date: 20210420
  Transmission Date: 20210717
  Serious: Yes (Hospitalization)
  Sender: FDA-Public Use
  Company Number: None

PATIENT
  Age: 34 Year
  Sex: Female
  Weight: 94.8 kg

DRUGS (3)
  1. PERTUZUMAB. [Suspect]
     Active Substance: PERTUZUMAB
     Dates: end: 20210310
  2. TAXOL [Suspect]
     Active Substance: PACLITAXEL
     Dates: end: 20210208
  3. HERCEPTIN [Suspect]
     Active Substance: TRASTUZUMAB
     Dates: end: 20210310

REACTIONS (3)
  - Postoperative wound infection [None]
  - Mastitis [None]
  - Staphylococcus test positive [None]

NARRATIVE: CASE EVENT DATE: 20210329
